FAERS Safety Report 19745991 (Version 1)
Quarter: 2021Q3

REPORT INFORMATION
  Report Type: Spontaneous
  Country: DE (occurrence: DE)
  Receive Date: 20210825
  Receipt Date: 20210825
  Transmission Date: 20211014
  Serious: Yes (Other)
  Sender: FDA-Public Use
  Company Number: NVSC2021DE184557

PATIENT
  Age: 18 Year
  Sex: Male
  Weight: 51 kg

DRUGS (12)
  1. TREOSULFAN [Suspect]
     Active Substance: TREOSULFAN
     Indication: ACTIVATED PI3 KINASE DELTA SYNDROME
  2. FLUDARABINE [Suspect]
     Active Substance: FLUDARABINE PHOSPHATE
     Indication: EPSTEIN-BARR VIRUS INFECTION
  3. ALEMTUZUMAB [Suspect]
     Active Substance: ALEMTUZUMAB
     Indication: ACTIVATED PI3 KINASE DELTA SYNDROME
  4. FLUDARABINE [Suspect]
     Active Substance: FLUDARABINE PHOSPHATE
     Indication: ACTIVATED PI3 KINASE DELTA SYNDROME
  5. THIOTEPA. [Suspect]
     Active Substance: THIOTEPA
     Indication: ACTIVATED PI3 KINASE DELTA SYNDROME
  6. THIOTEPA. [Suspect]
     Active Substance: THIOTEPA
     Indication: EPSTEIN-BARR VIRUS INFECTION
  7. FLUDARABINE [Suspect]
     Active Substance: FLUDARABINE PHOSPHATE
     Indication: ALLOGENIC STEM CELL TRANSPLANTATION
     Dosage: UNK
     Route: 065
  8. ALEMTUZUMAB [Suspect]
     Active Substance: ALEMTUZUMAB
     Indication: ALLOGENIC STEM CELL TRANSPLANTATION
     Dosage: UNK
     Route: 065
  9. ALEMTUZUMAB [Suspect]
     Active Substance: ALEMTUZUMAB
     Indication: EPSTEIN-BARR VIRUS INFECTION
  10. TREOSULFAN [Suspect]
     Active Substance: TREOSULFAN
     Indication: EPSTEIN-BARR VIRUS INFECTION
  11. THIOTEPA. [Suspect]
     Active Substance: THIOTEPA
     Indication: ALLOGENIC STEM CELL TRANSPLANTATION
     Dosage: UNK
     Route: 065
  12. TREOSULFAN [Suspect]
     Active Substance: TREOSULFAN
     Indication: ALLOGENIC STEM CELL TRANSPLANTATION
     Dosage: UNK
     Route: 065

REACTIONS (19)
  - Acute graft versus host disease [Unknown]
  - Hepatomegaly [Unknown]
  - Neutrophil count decreased [Unknown]
  - Anal abscess [Unknown]
  - Cytomegalovirus infection reactivation [Unknown]
  - Transplant failure [Unknown]
  - Ileus paralytic [Unknown]
  - Drug resistance [Unknown]
  - Product use in unapproved indication [Unknown]
  - Venoocclusive liver disease [Unknown]
  - Neutropenic colitis [Unknown]
  - Atelectasis [Unknown]
  - Herpes simplex [Unknown]
  - Mucosal inflammation [Unknown]
  - Ascites [Unknown]
  - Pleural effusion [Unknown]
  - Erythema multiforme [Unknown]
  - Weight increased [Unknown]
  - Thrombocytopenia [Unknown]

NARRATIVE: CASE EVENT DATE: 20200406
